FAERS Safety Report 8330002-4 (Version None)
Quarter: 2012Q2

REPORT INFORMATION
  Report Type: 
  Country: None (occurrence: None)
  Receive Date: 20120502
  Receipt Date: 20120426
  Transmission Date: 20120825
  Serious: Yes (Other)
  Sender: FDA-Public Use
  Company Number: FR-PFIZER INC-2012103569

PATIENT
  Age: 55 Year
  Sex: Male

DRUGS (4)
  1. ACETAMINOPHEN [Concomitant]
     Indication: SCIATICA
     Dosage: UNK
     Route: 048
     Dates: start: 20110101
  2. PREDNISOLONE [Concomitant]
     Indication: SCIATICA
     Dosage: UNK
     Route: 048
     Dates: start: 20110101
  3. TETRAZEPAM [Concomitant]
     Indication: SCIATICA
     Dosage: UNK
     Route: 048
     Dates: start: 20110101
  4. LYRICA [Suspect]
     Indication: SCIATICA
     Dosage: 100 MG, 2X/DAY
     Route: 048
     Dates: start: 20111230, end: 20111231

REACTIONS (1)
  - CONVULSION [None]
